FAERS Safety Report 18963231 (Version 1)
Quarter: 2021Q1

REPORT INFORMATION
  Report Type: Spontaneous
  Country: DE (occurrence: DE)
  Receive Date: 20210303
  Receipt Date: 20210303
  Transmission Date: 20210420
  Serious: Yes (Hospitalization, Other)
  Sender: FDA-Public Use
  Company Number: DE-ADVANZ PHARMA-202102001472

PATIENT

DRUGS (2)
  1. ZONISAMIDE. [Suspect]
     Active Substance: ZONISAMIDE
     Indication: IDIOPATHIC GENERALISED EPILEPSY
     Dosage: 500 MG, QD, TABLET, ZONEGRAN
     Route: 048
     Dates: start: 2007
  2. VIMPAT [Concomitant]
     Active Substance: LACOSAMIDE
     Indication: IDIOPATHIC GENERALISED EPILEPSY
     Dosage: 400 MG, QD
     Route: 048
     Dates: start: 2012

REACTIONS (1)
  - Nephrolithiasis [Unknown]

NARRATIVE: CASE EVENT DATE: 2020
